FAERS Safety Report 25429105 (Version 1)
Quarter: 2025Q2

REPORT INFORMATION
  Report Type: Report from Study
  Country: AR (occurrence: AR)
  Receive Date: 20250612
  Receipt Date: 20250612
  Transmission Date: 20250717
  Serious: Yes (Hospitalization)
  Sender: BIOGEN
  Company Number: AR-BIOGEN-2025BI01313773

PATIENT
  Age: 52 Year
  Sex: Female

DRUGS (2)
  1. TYSABRI [Suspect]
     Active Substance: NATALIZUMAB
     Indication: Multiple sclerosis
     Dosage: LAST ADMINISTRATION: 09MAY2025
     Route: 050
     Dates: start: 20230707
  2. FAMPIRIDINA [Concomitant]
     Indication: Product used for unknown indication
     Route: 050

REACTIONS (2)
  - Gait disturbance [Not Recovered/Not Resolved]
  - Psoas sign [Not Recovered/Not Resolved]

NARRATIVE: CASE EVENT DATE: 20250101
